FAERS Safety Report 23280161 (Version 1)
Quarter: 2023Q4

REPORT INFORMATION
  Report Type: Spontaneous
  Country: US (occurrence: US)
  Receive Date: 20231210
  Receipt Date: 20231210
  Transmission Date: 20240109
  Serious: No
  Sender: FDA-Public Use
  Company Number: US-COLLEGIUM PHARMACEUTICAL, INC.-20230800631

PATIENT

DRUGS (2)
  1. NUCYNTA [Suspect]
     Active Substance: TAPENTADOL HYDROCHLORIDE
     Indication: Pain
     Dosage: 50 MILLIGRAM, BID
     Route: 065
     Dates: start: 20230725, end: 20230728
  2. GABAPENTIN [Concomitant]
     Active Substance: GABAPENTIN
     Indication: Product used for unknown indication
     Dosage: 300 MILLIGRAM, TID
     Route: 065

REACTIONS (9)
  - Drug ineffective [Unknown]
  - Nausea [Recovered/Resolved]
  - Headache [Recovered/Resolved]
  - Sneezing [Recovered/Resolved]
  - Nasopharyngitis [Recovered/Resolved]
  - Rhinorrhoea [Recovered/Resolved]
  - Productive cough [Recovered/Resolved]
  - Malaise [Recovered/Resolved]
  - Inappropriate schedule of product discontinuation [Unknown]

NARRATIVE: CASE EVENT DATE: 20230725
